FAERS Safety Report 19890124 (Version 1)
Quarter: 2021Q3

REPORT INFORMATION
  Report Type: Report from Study
  Country: US (occurrence: US)
  Receive Date: 20210927
  Receipt Date: 20210927
  Transmission Date: 20211014
  Serious: Yes (Other)
  Sender: FDA-Public Use
  Company Number: US-BAYER-2021-199666

PATIENT
  Age: 56 Year
  Sex: Male

DRUGS (5)
  1. STIVARGA [Suspect]
     Active Substance: REGORAFENIB
     Indication: RECTAL CANCER
     Dosage: DAILY DOSE 80 MG
     Route: 048
     Dates: start: 20210805
  2. STIVARGA [Suspect]
     Active Substance: REGORAFENIB
     Indication: RECTAL CANCER
     Dosage: DAILY DOSE 120 MG; 2 IN THE MORNING AND 1 IN THE EVNING
     Route: 048
  3. STIVARGA [Suspect]
     Active Substance: REGORAFENIB
     Indication: RECTAL CANCER
     Dosage: 160 MG DAILY FOR 21 DAYS ON, 7 DAYS OFF
     Route: 048
     Dates: start: 20210920
  4. BC [ACETYLSALICYLIC ACID;CAFFEINE] [Concomitant]
     Dosage: UNK
  5. STIVARGA [Suspect]
     Active Substance: REGORAFENIB
     Indication: RECTAL CANCER
     Dosage: DAILY DOSE 160 MG, TAKING 2 IN THE MORNING AND 2 IN THE EVENING
     Route: 048

REACTIONS (11)
  - Dysphonia [Not Recovered/Not Resolved]
  - Off label use [None]
  - Nausea [Not Recovered/Not Resolved]
  - Arthralgia [Unknown]
  - Dyspepsia [Unknown]
  - Fatigue [Not Recovered/Not Resolved]
  - Constipation [Unknown]
  - Sleep disorder [Unknown]
  - Decreased appetite [Unknown]
  - Inappropriate schedule of product administration [None]
  - Cyst [Unknown]

NARRATIVE: CASE EVENT DATE: 202108
